FAERS Safety Report 7870878-8 (Version None)
Quarter: 2011Q4

REPORT INFORMATION
  Report Type: 
  Country: None (occurrence: None)
  Receive Date: 20111029
  Receipt Date: 20110217
  Transmission Date: 20120403
  Serious: No
  Sender: FDA-Public Use
  Company Number: US-AMGEN-USASP2011009448

PATIENT
  Age: 54 Year
  Sex: Male

DRUGS (2)
  1. TREXALL [Concomitant]
     Dates: start: 20100101
  2. ENBREL [Suspect]
     Indication: RHEUMATOID ARTHRITIS
     Dosage: 50 MG, QWK
     Dates: start: 20101201

REACTIONS (7)
  - FEELING HOT [None]
  - INJECTION SITE PAIN [None]
  - PAIN IN EXTREMITY [None]
  - INJECTION SITE INDURATION [None]
  - BACK PAIN [None]
  - INJECTION SITE SWELLING [None]
  - INJECTION SITE ERYTHEMA [None]
